FAERS Safety Report 6263445-3 (Version None)
Quarter: 2009Q3

REPORT INFORMATION
  Report Type: 
  Country: None (occurrence: None)
  Receive Date: 20090710
  Receipt Date: 20090220
  Transmission Date: 20100115
  Serious: No
  Sender: FDA-Public Use
  Company Number: A0769778A

PATIENT
  Age: 48 Year
  Sex: Female

DRUGS (20)
  1. FLOVENT [Suspect]
     Indication: BRONCHIECTASIS
     Dosage: 2PUFF TWICE PER DAY
     Route: 055
     Dates: start: 20050101
  2. ALBUTEROL [Concomitant]
  3. SEREVENT [Concomitant]
  4. OXYGEN [Concomitant]
  5. SYNTHROID [Concomitant]
  6. CLARITIN [Concomitant]
  7. PREVACID [Concomitant]
  8. OXYBUTYNIN CHLORIDE [Concomitant]
  9. CALTRATE [Concomitant]
  10. VIT E [Concomitant]
  11. VIT C [Concomitant]
  12. TEGRETOL [Concomitant]
  13. SEROQUEL [Concomitant]
  14. RISPERDAL [Concomitant]
  15. STOOL SOFTENERS [Concomitant]
  16. ULTRAVATE [Concomitant]
  17. NASAREL SPRAY [Concomitant]
  18. AMOXICILLIN [Concomitant]
  19. BACTRIM [Concomitant]
  20. DIFLUCAN [Concomitant]

REACTIONS (9)
  - COUGH [None]
  - EAR INFECTION [None]
  - FUNGAL INFECTION [None]
  - LARYNGITIS [None]
  - NASOPHARYNGITIS [None]
  - RESPIRATORY DISORDER [None]
  - STRESS [None]
  - URINARY TRACT INFECTION [None]
  - WHEEZING [None]
